FAERS Safety Report 11927468 (Version 1)
Quarter: 2016Q1

REPORT INFORMATION
  Report Type: Spontaneous
  Country: None (occurrence: None)
  Receive Date: 20160115
  Receipt Date: 20160115
  Transmission Date: 20160526
  Serious: No
  Sender: FDA-Public Use
  Company Number: None

PATIENT
  Sex: Male

DRUGS (4)
  1. CLONAZEPAM. [Suspect]
     Active Substance: CLONAZEPAM
  2. LITHIUM. [Suspect]
     Active Substance: LITHIUM
  3. TOPAMINE [Suspect]
     Active Substance: BROMPHENIRAMINE\PHENYLEPHRINE
  4. PROMETHAZINE [Concomitant]
     Active Substance: PROMETHAZINE\PROMETHAZINE HYDROCHLORIDE

REACTIONS (5)
  - Prostatomegaly [None]
  - Sleep disorder [None]
  - Anxiety [None]
  - Weight decreased [None]
  - White blood cell count increased [None]
